FAERS Safety Report 10534902 (Version 1)
Quarter: 2014Q4

REPORT INFORMATION
  Report Type: Spontaneous
  Country: US (occurrence: US)
  Receive Date: 20141022
  Receipt Date: 20141022
  Transmission Date: 20150529
  Serious: No
  Sender: FDA-Public Use
  Company Number: US-ASTRAZENECA-2014SE03744

PATIENT
  Age: 60 Year
  Sex: Female
  Weight: 68.9 kg

DRUGS (3)
  1. OTHERS [Concomitant]
     Dosage: UNKNOWN UNK
  2. CRESTOR [Suspect]
     Active Substance: ROSUVASTATIN CALCIUM
     Indication: BLOOD CHOLESTEROL INCREASED
     Route: 048
     Dates: end: 201210
  3. CRESTOR [Suspect]
     Active Substance: ROSUVASTATIN CALCIUM
     Indication: BLOOD CHOLESTEROL INCREASED
     Route: 048
     Dates: start: 201212, end: 20140112

REACTIONS (16)
  - Feeling abnormal [Unknown]
  - Hypersensitivity [Unknown]
  - Blood cholesterol increased [Unknown]
  - Musculoskeletal discomfort [Unknown]
  - Arthralgia [Unknown]
  - Drug dose omission [Unknown]
  - Pain [Unknown]
  - Confusional state [Unknown]
  - Fibromyalgia [Unknown]
  - Arthritis [Unknown]
  - Muscular weakness [Unknown]
  - Insomnia [Unknown]
  - Back pain [Unknown]
  - Gait disturbance [Unknown]
  - Musculoskeletal pain [Unknown]
  - Limb discomfort [Unknown]

NARRATIVE: CASE EVENT DATE: 201210
